FAERS Safety Report 18999783 (Version 1)
Quarter: 2021Q1

REPORT INFORMATION
  Report Type: Spontaneous
  Country: US (occurrence: US)
  Receive Date: 20210311
  Receipt Date: 20210311
  Transmission Date: 20210420
  Serious: No
  Sender: FDA-Public Use
  Company Number: US-MYLANLABS-2021M1013113

PATIENT
  Age: 54 Year
  Sex: Female
  Weight: 79 kg

DRUGS (1)
  1. LIDOCAINE PATCH [Suspect]
     Active Substance: LIDOCAINE
     Indication: BACK PAIN
     Dosage: 5 PERCENT BID (12 HOURS ON, 12 HOURS OFF)
     Route: 003
     Dates: start: 20210225, end: 2021

REACTIONS (2)
  - Off label use [Not Recovered/Not Resolved]
  - Product adhesion issue [Not Recovered/Not Resolved]

NARRATIVE: CASE EVENT DATE: 20210225
